FAERS Safety Report 14695820 (Version 1)
Quarter: 2018Q1

REPORT INFORMATION
  Report Type: Spontaneous
  Country: US (occurrence: US)
  Receive Date: 20180328
  Receipt Date: 20180328
  Transmission Date: 20180509
  Serious: No
  Sender: FDA-Public Use
  Company Number: None

PATIENT
  Age: 18 Year
  Sex: Male
  Weight: 58.5 kg

DRUGS (1)
  1. GUANFACINE ER [Suspect]
     Active Substance: GUANFACINE
     Indication: ATTENTION DEFICIT/HYPERACTIVITY DISORDER
     Dosage: ?          QUANTITY:1 TABLET(S);?
     Route: 048
     Dates: start: 20180110, end: 20180322

REACTIONS (6)
  - Drug ineffective [None]
  - Educational problem [None]
  - Product substitution issue [None]
  - Symptom recurrence [None]
  - Oppositional defiant disorder [None]
  - Insurance issue [None]
